FAERS Safety Report 9434983 (Version 1)
Quarter: 2013Q3

REPORT INFORMATION
  Report Type: Spontaneous
  Country: CA (occurrence: CA)
  Receive Date: 20130801
  Receipt Date: 20130801
  Transmission Date: 20140515
  Serious: Yes (Other)
  Sender: FDA-Public Use
  Company Number: PHHY2013CA080606

PATIENT
  Age: 63 Year
  Sex: Male

DRUGS (5)
  1. TASIGNA [Suspect]
     Indication: CHRONIC MYELOID LEUKAEMIA
     Dosage: 200-300 MG, BID
     Route: 048
     Dates: start: 20100713
  2. METOPROLOL [Concomitant]
     Dosage: 25 MG, BID
  3. LIPITOR [Concomitant]
     Dosage: 10 MG
  4. ASAPHEN [Concomitant]
     Dosage: 80 MG
  5. GLUCOPHAGE [Concomitant]

REACTIONS (2)
  - Sensory loss [Not Recovered/Not Resolved]
  - Wound [Not Recovered/Not Resolved]
